FAERS Safety Report 16481190 (Version 1)
Quarter: 2019Q2

REPORT INFORMATION
  Report Type: Spontaneous
  Country: TR (occurrence: TR)
  Receive Date: 20190626
  Receipt Date: 20190626
  Transmission Date: 20190711
  Serious: Yes (Other)
  Sender: FDA-Public Use
  Company Number: TR-ASTRAZENECA-2019SE88875

PATIENT
  Age: 22 Year
  Sex: Male
  Weight: 85 kg

DRUGS (6)
  1. NEXIUM [Suspect]
     Active Substance: ESOMEPRAZOLE MAGNESIUM
     Dosage: 40.0MG UNKNOWN
     Route: 048
  2. FAMOTIDINE. [Concomitant]
     Active Substance: FAMOTIDINE
     Dosage: 40 MG FILM TABLET; ONCE IN EVENING AFTER MEAL
  3. PANKREAFLAT [Concomitant]
     Dosage: 170 MG 60 FILM TABLET; IN MORNING AND EVENING BETWEEN THE MEALS
  4. SPOSMOMEN [Concomitant]
     Dosage: 40 MG FILM TABLET; THREE TIMES IN A DAY (MORNING-NOON AND EVENING BEFORE MEAL)
  5. NEXIUM [Suspect]
     Active Substance: ESOMEPRAZOLE MAGNESIUM
     Dosage: 70.0MG UNKNOWN
     Route: 048
     Dates: start: 20190610, end: 20190613
  6. ALGINIC ACID [Concomitant]
     Active Substance: ALGINIC ACID
     Dosage: 200 MG SYRUP; IN EVENING AFTER MEAL

REACTIONS (3)
  - Anal haemorrhage [Unknown]
  - Haemorrhoids [Unknown]
  - Gait disturbance [Unknown]
